FAERS Safety Report 11690966 (Version 1)
Quarter: 2015Q4

REPORT INFORMATION
  Report Type: Spontaneous
  Country: US (occurrence: JP)
  Receive Date: 20151102
  Receipt Date: 20151102
  Transmission Date: 20160304
  Serious: Yes (Hospitalization)
  Sender: FDA-Public Use
  Company Number: US-AKORN PHARMACEUTICALS-2015AKN00623

PATIENT
  Age: 63 Year
  Sex: Female

DRUGS (2)
  1. COBALUM [Concomitant]
     Dosage: UNK
     Route: 047
  2. ZIOPTAN [Suspect]
     Active Substance: TAFLUPROST
     Indication: GLAUCOMA
     Dosage: 15 UG/ML; 2 DAY
     Route: 047
     Dates: start: 20130306

REACTIONS (1)
  - Breast cancer [Unknown]
